FAERS Safety Report 25375332 (Version 2)
Quarter: 2025Q2

REPORT INFORMATION
  Report Type: Spontaneous
  Country: US (occurrence: US)
  Receive Date: 20250529
  Receipt Date: 20250605
  Transmission Date: 20250716
  Serious: No
  Sender: GUERBET
  Company Number: US-GUERBET / LLC-US-20250095

PATIENT
  Age: 36 Year
  Weight: 80.6 kg

DRUGS (1)
  1. ELUCIREM [Suspect]
     Active Substance: GADOPICLENOL
     Indication: Magnetic resonance imaging spinal
     Route: 042
     Dates: start: 20250304, end: 20250304

REACTIONS (1)
  - Rash [Recovered/Resolved]

NARRATIVE: CASE EVENT DATE: 20250404
